FAERS Safety Report 17031421 (Version 2)
Quarter: 2020Q3

REPORT INFORMATION
  Report Type: Spontaneous
  Country: US (occurrence: US)
  Receive Date: 20191114
  Receipt Date: 20200924
  Transmission Date: 20201102
  Serious: No
  Sender: FDA-Public Use
  Company Number: US-ASTRAZENECA-2019SF58527

PATIENT
  Age: 76 Year
  Sex: Male

DRUGS (7)
  1. MOVANTIK [Suspect]
     Active Substance: NALOXEGOL OXALATE
     Indication: CONSTIPATION
     Dosage: 25 MG
     Route: 048
     Dates: start: 20191105, end: 20191105
  2. STATIN [Concomitant]
     Active Substance: UNSPECIFIED INGREDIENT
     Indication: BLOOD CHOLESTEROL ABNORMAL
  3. IMMODUIM [Concomitant]
     Indication: DIARRHOEA
     Dates: start: 20191105
  4. LOSARTEN WITH HYDROCHLORATHIAZIDE [Concomitant]
     Indication: HYPERTENSION
     Dosage: 50 MG
  5. MOVANTIK [Suspect]
     Active Substance: NALOXEGOL OXALATE
     Dosage: 12.5 MG
     Route: 048
  6. MORPHINE LA [Concomitant]
     Indication: ANKYLOSING SPONDYLITIS
     Dosage: 90 MG
     Dates: start: 2015
  7. MORPHINE IR [Concomitant]
     Active Substance: MORPHINE
     Indication: ANKYLOSING SPONDYLITIS
     Dosage: 25 MG
     Dates: start: 2015

REACTIONS (4)
  - Tremor [Recovering/Resolving]
  - Chills [Recovering/Resolving]
  - Nausea [Recovering/Resolving]
  - Diarrhoea [Recovering/Resolving]

NARRATIVE: CASE EVENT DATE: 20191105
